FAERS Safety Report 9237922 (Version 2)
Quarter: 2013Q2

REPORT INFORMATION
  Report Type: Spontaneous
  Country: US (occurrence: None)
  Receive Date: 20130415
  Receipt Date: 20130429
  Transmission Date: 20140414
  Serious: Yes (Hospitalization)
  Sender: FDA-Public Use
  Company Number: 7202836

PATIENT
  Sex: Female

DRUGS (6)
  1. LEVOTHYROX [Suspect]
     Indication: PRODUCT USED FOR UNKNOWN INDICATION
     Dosage: (150 MC- 2) 1 IN 1 D
     Route: 048
     Dates: end: 201201
  2. MILDAC(HYPERICUM PERFORATUM EXTRACT) (HYPERICUM EXTRACT) [Suspect]
     Indication: PRODUCT USED FOR UNKNOWN INDICATION
     Route: 048
     Dates: start: 20130304, end: 20130309
  3. CELEBREX [Suspect]
     Indication: PRODUCT USED FOR UNKNOWN INDICATION
  4. SIGULAIR (MONTELUKAST) (MONTELUKAST) [Concomitant]
  5. SERETIDE (SERETIDE  /01420901/) (FLUTICASONE PROPIONATE, SALMETEROL XINAFORTE) [Concomitant]
  6. KESTIN (EBASTINE) (EBASTINE) [Concomitant]

REACTIONS (12)
  - Loss of consciousness [None]
  - Amnesia [None]
  - Visual impairment [None]
  - Drug interaction [None]
  - Partial seizures [None]
  - Headache [None]
  - Vision blurred [None]
  - Product size issue [None]
  - Wrong technique in drug usage process [None]
  - Product quality issue [None]
  - Agitation [None]
  - Hallucination [None]
